FAERS Safety Report 6759383-X (Version None)
Quarter: 2010Q2

REPORT INFORMATION
  Report Type: 
  Country: None (occurrence: None)
  Receive Date: 20100602
  Receipt Date: 20100526
  Transmission Date: 20101027
  Serious: No
  Sender: FDA-Public Use
  Company Number: LIT-10-0032

PATIENT
  Age: 30 Year
  Sex: Male

DRUGS (1)
  1. CARBAMAZEPINE [Suspect]
     Indication: TINNITUS
     Dosage: 400MG DAILY 047

REACTIONS (2)
  - NAUSEA [None]
  - SPEECH DISORDER [None]
